FAERS Safety Report 6333665-8 (Version None)
Quarter: 2009Q3

REPORT INFORMATION
  Report Type: 
  Country: None (occurrence: None)
  Receive Date: 20090829
  Receipt Date: 20090519
  Transmission Date: 20100115
  Serious: No
  Sender: FDA-Public Use
  Company Number: US-ABBOTT-09P-163-0575137-00

PATIENT
  Sex: Female
  Weight: 57.658 kg

DRUGS (11)
  1. SIMCOR [Suspect]
     Indication: BLOOD TRIGLYCERIDES INCREASED
     Dosage: 500/20MG DAILY
     Dates: start: 20090101, end: 20090201
  2. SIMCOR [Suspect]
     Dates: start: 20090301
  3. ASPIRIN [Concomitant]
     Indication: PROPHYLAXIS
     Dosage: 325 MG DAILY WITH SIMCOR
     Dates: start: 20090101, end: 20090201
  4. ASPIRIN [Concomitant]
     Dates: start: 20090301, end: 20090401
  5. PROXETINE [Concomitant]
     Indication: ANXIETY
  6. ACEBUTOLOL [Concomitant]
     Indication: HEART RATE IRREGULAR
  7. NIFEDIPINE [Concomitant]
     Indication: HYPERTENSION
  8. VITAMIN D [Concomitant]
     Indication: OSTEOPOROSIS PROPHYLAXIS
  9. VITAMIN B COMPLEX CAP [Concomitant]
     Indication: VITAMIN SUPPLEMENTATION
  10. MULTI-VITAMIN [Concomitant]
     Indication: VITAMIN SUPPLEMENTATION
  11. ALIGN [Concomitant]
     Indication: SUPPLEMENTATION THERAPY

REACTIONS (5)
  - ABDOMINAL DISTENSION [None]
  - BACK PAIN [None]
  - FLATULENCE [None]
  - FLUSHING [None]
  - PAIN IN EXTREMITY [None]
